FAERS Safety Report 5482301-1 (Version None)
Quarter: 2007Q4

REPORT INFORMATION
  Report Type: 
  Country: None (occurrence: None)
  Receive Date: 20071011
  Receipt Date: 20070924
  Transmission Date: 20080405
  Serious: Yes (Life-Threatening)
  Sender: FDA-Public Use
  Company Number: IT-ELI_LILLY_AND_COMPANY-IT200705002595

PATIENT
  Sex: Female

DRUGS (4)
  1. GEMCITABINE HCL [Suspect]
     Indication: ADENOCARCINOMA PANCREAS
     Dosage: 1300 MG, OTHER
     Route: 042
     Dates: end: 20070423
  2. GEMCITABINE HCL [Suspect]
     Dosage: UNK, UNKNOWN
     Route: 065
     Dates: start: 20061201, end: 20070423
  3. PLASIL [Concomitant]
     Dosage: 1 D/F, UNK
     Route: 042
     Dates: start: 20070423, end: 20070423
  4. SOLDESAM [Concomitant]
     Dosage: 16 MG, UNK
     Route: 042
     Dates: start: 20070423, end: 20070423

REACTIONS (5)
  - FLUID RETENTION [None]
  - GRAVITATIONAL OEDEMA [None]
  - HYPOTENSION [None]
  - PYREXIA [None]
  - RASH MACULO-PAPULAR [None]
